FAERS Safety Report 4944615-0 (Version None)
Quarter: 2006Q1

REPORT INFORMATION
  Report Type: 
  Country: None (occurrence: None)
  Receive Date: 20060315
  Receipt Date: 20060113
  Transmission Date: 20060701
  Serious: Yes (Life-Threatening, Hospitalization)
  Sender: FDA-Public Use
  Company Number: PHFR2006GB00539

PATIENT
  Age: 76 Year
  Sex: Female
  Weight: 35 kg

DRUGS (8)
  1. DESFERAL [Suspect]
     Indication: CHELATION THERAPY
     Dosage: UNK, UNK
     Route: 058
     Dates: start: 20050701
  2. ALENDRONIC ACID [Concomitant]
     Route: 065
  3. CLOPIDOGREL [Concomitant]
     Route: 065
  4. ATENOLOL [Concomitant]
     Route: 065
  5. CALCICHEW [Concomitant]
     Route: 065
  6. ATORVASTATIN CALCIUM [Concomitant]
     Route: 065
  7. FOLIC ACID [Concomitant]
     Route: 065
  8. ASCORBIC ACID [Concomitant]
     Route: 065

REACTIONS (7)
  - ABDOMINAL PAIN [None]
  - ABDOMINAL SEPSIS [None]
  - DIVERTICULUM [None]
  - KLEBSIELLA SEPSIS [None]
  - LAPAROTOMY [None]
  - OLIGURIA [None]
  - PERITONITIS [None]
